FAERS Safety Report 9243448 (Version 1)
Quarter: 2013Q2

REPORT INFORMATION
  Report Type: Spontaneous
  Country: US (occurrence: US)
  Receive Date: 20130421
  Receipt Date: 20130421
  Transmission Date: 20140414
  Serious: No
  Sender: FDA-Public Use
  Company Number: US-ASTRAZENECA-2013SE21172

PATIENT
  Sex: 0

DRUGS (4)
  1. PRILOSEC [Suspect]
     Dosage: UNSPECIFIED TOTAL DAILY USE
     Route: 048
  2. PRILOSEC [Suspect]
     Dosage: DOUBLED UP THE DOSE BY 20MG TWICE A WEEK
     Route: 048
  3. PRILOSEC OTC [Suspect]
     Dosage: UNSPECIFIED TOTAL DAILY USE
     Route: 048
  4. PRILOSEC OTC [Suspect]
     Dosage: DOUBLED UP THE DOSE BY 20MG TWICE A WEEK
     Route: 048

REACTIONS (2)
  - Diarrhoea [Unknown]
  - Incorrect dose administered [Unknown]
